FAERS Safety Report 15330461 (Version 2)
Quarter: 2018Q3

REPORT INFORMATION
  Report Type: Report from Study
  Country: US (occurrence: US)
  Receive Date: 20180829
  Receipt Date: 20180831
  Transmission Date: 20181010
  Serious: Yes (Other)
  Sender: FDA-Public Use
  Company Number: US-ROCHE-2175319

PATIENT
  Sex: Female

DRUGS (14)
  1. CIMETIDINE [Concomitant]
     Active Substance: CIMETIDINE
     Route: 065
  2. AUVI?Q [Concomitant]
     Active Substance: EPINEPHRINE
     Dosage: SOS
     Route: 065
  3. DOXEPIN HCL [Concomitant]
     Active Substance: DOXEPIN HYDROCHLORIDE
  4. ACETAMINOPHEN. [Concomitant]
     Active Substance: ACETAMINOPHEN
  5. HYDROXYZINE HCL [Concomitant]
     Active Substance: HYDROXYZINE HYDROCHLORIDE
     Route: 065
  6. CYPROHEPTADINE HCL [Concomitant]
     Active Substance: CYPROHEPTADINE HYDROCHLORIDE
     Route: 065
  7. PROMETHAZINE HCL [Concomitant]
     Active Substance: PROMETHAZINE HYDROCHLORIDE
  8. DIPHENHYDRAMINE HCL [Concomitant]
     Active Substance: DIPHENHYDRAMINE HYDROCHLORIDE
     Dosage: SOS
     Route: 065
  9. SUMATRIPTAN SUCCINATE. [Concomitant]
     Active Substance: SUMATRIPTAN SUCCINATE
     Route: 065
  10. XOLAIR [Suspect]
     Active Substance: OMALIZUMAB
     Indication: URTICARIA
     Route: 058
     Dates: start: 20180118
  11. CETRIZINE [Concomitant]
     Active Substance: CETIRIZINE HYDROCHLORIDE
     Route: 065
  12. MONTELUKAST SODIUM. [Concomitant]
     Active Substance: MONTELUKAST SODIUM
     Route: 065
  13. ZOFRAN [Concomitant]
     Active Substance: ONDANSETRON HYDROCHLORIDE
  14. PREDNISONE. [Concomitant]
     Active Substance: PREDNISONE
     Route: 048

REACTIONS (13)
  - Dysphonia [Unknown]
  - Rash [Unknown]
  - Upper-airway cough syndrome [Unknown]
  - Pharyngeal disorder [Unknown]
  - Ear discomfort [Unknown]
  - Swelling face [Unknown]
  - Fatigue [Unknown]
  - Irritable bowel syndrome [Unknown]
  - Ill-defined disorder [Unknown]
  - Dysphagia [Unknown]
  - Nasal congestion [Unknown]
  - Chills [Unknown]
  - Paraesthesia [Unknown]
